FAERS Safety Report 10689626 (Version 1)
Quarter: 2015Q1

REPORT INFORMATION
  Report Type: Spontaneous
  Country: US (occurrence: None)
  Receive Date: 20150102
  Receipt Date: 20150102
  Transmission Date: 20150720
  Serious: Yes (Hospitalization)
  Sender: FDA-Public Use
  Company Number: None

PATIENT
  Age: 45 Year
  Sex: Male
  Weight: 75.9 kg

DRUGS (1)
  1. TAMSULOSIN [Suspect]
     Active Substance: TAMSULOSIN
     Indication: BENIGN PROSTATIC HYPERPLASIA
     Route: 048
     Dates: start: 20140923, end: 20140930

REACTIONS (6)
  - Headache [None]
  - Feeling hot [None]
  - Lip swelling [None]
  - Dyspnoea [None]
  - Eye pain [None]
  - Toothache [None]

NARRATIVE: CASE EVENT DATE: 20140930
